FAERS Safety Report 20583816 (Version 8)
Quarter: 2022Q4

REPORT INFORMATION
  Report Type: Report from Study
  Country: CA (occurrence: CA)
  Receive Date: 20220311
  Receipt Date: 20221021
  Transmission Date: 20230112
  Serious: Yes (Hospitalization, Other)
  Sender: FDA-Public Use
  Company Number: CA-ABBVIE-22K-028-4310873-00

PATIENT
  Sex: Female

DRUGS (6)
  1. RINVOQ [Suspect]
     Active Substance: UPADACITINIB
     Indication: Rheumatoid arthritis
     Dosage: 15 MG; FORM STRENGTH: 15 MG
     Route: 048
     Dates: start: 20200518, end: 20220302
  2. RINVOQ [Suspect]
     Active Substance: UPADACITINIB
     Indication: Rheumatoid arthritis
     Dosage: FORM STRENGTH: 15 MG
     Route: 048
     Dates: start: 20220415
  3. RINVOQ [Suspect]
     Active Substance: UPADACITINIB
     Indication: Rheumatoid arthritis
     Dosage: FORM STRENGTH: 15 MG
     Route: 048
  4. RINVOQ [Suspect]
     Active Substance: UPADACITINIB
     Indication: Rheumatoid arthritis
     Dosage: 15 MG; FORM STRENGTH: 15 MG
     Route: 048
  5. RINVOQ [Suspect]
     Active Substance: UPADACITINIB
     Indication: Rheumatoid arthritis
     Dosage: FORM STRENGTH: 15 MG
     Route: 048
  6. TELMISARTAN [Concomitant]
     Active Substance: TELMISARTAN
     Indication: Product used for unknown indication

REACTIONS (26)
  - Joint dislocation [Unknown]
  - Pain in extremity [Unknown]
  - Ankle fracture [Unknown]
  - Musculoskeletal disorder [Unknown]
  - Swelling [Unknown]
  - Pain [Unknown]
  - Condition aggravated [Unknown]
  - Hypertension [Not Recovered/Not Resolved]
  - Tinnitus [Unknown]
  - Blood pressure abnormal [Unknown]
  - Blood pressure abnormal [Unknown]
  - Neuralgia [Unknown]
  - Limb mass [Unknown]
  - Joint stiffness [Recovering/Resolving]
  - Skin ulcer [Unknown]
  - Scab [Unknown]
  - Arthralgia [Unknown]
  - Neck pain [Unknown]
  - Back disorder [Unknown]
  - Headache [Unknown]
  - Thrombosis [Unknown]
  - Trigger finger [Unknown]
  - Hypoaesthesia [Unknown]
  - Finger deformity [Unknown]
  - Mobility decreased [Not Recovered/Not Resolved]
  - Joint swelling [Unknown]

NARRATIVE: CASE EVENT DATE: 20220101
